FAERS Safety Report 8152562-9 (Version None)
Quarter: 2012Q1

REPORT INFORMATION
  Report Type: 
  Country: None (occurrence: None)
  Receive Date: 20120221
  Receipt Date: 20120213
  Transmission Date: 20120608
  Serious: Yes (Hospitalization)
  Sender: FDA-Public Use
  Company Number: US-JNJFOC-20120206967

PATIENT
  Age: 59 Year
  Sex: Female
  Weight: 78.9 kg

DRUGS (2)
  1. VELCADE [Suspect]
     Indication: MULTIPLE MYELOMA
     Dosage: ON DAY 1, 4, 8 AND 11 OF EVERY 21 DAY CYCLE, TOTAL DOSE 9.88 MG
     Route: 042
     Dates: start: 20050923, end: 20051003
  2. DOXORUBICIN HCL [Suspect]
     Indication: MULTIPLE MYELOMA
     Dosage: OVER 1 HR ON DAY 4 EVERY 21 DAYS, TOTAL DOSE 57 MG
     Route: 042
     Dates: start: 20050926, end: 20050926

REACTIONS (4)
  - PERIPHERAL MOTOR NEUROPATHY [None]
  - MYOPATHY [None]
  - BACK PAIN [None]
  - PAIN [None]
